FAERS Safety Report 18032772 (Version 2)
Quarter: 2020Q3

REPORT INFORMATION
  Report Type: Spontaneous
  Country: IT (occurrence: IT)
  Receive Date: 20200716
  Receipt Date: 20200723
  Transmission Date: 20201103
  Serious: Yes (Life-Threatening)
  Sender: FDA-Public Use
  Company Number: IT-ROCHE-2643621

PATIENT
  Age: 79 Year
  Sex: Male
  Weight: 67 kg

DRUGS (5)
  1. RITUXIMAB. [Suspect]
     Active Substance: RITUXIMAB
     Indication: NON-HODGKIN^S LYMPHOMA
     Route: 041
     Dates: end: 20200618
  2. ELIQUIS [Concomitant]
     Active Substance: APIXABAN
  3. VALSARTAN. [Concomitant]
     Active Substance: VALSARTAN
  4. LANOXIN [Concomitant]
     Active Substance: DIGOXIN
  5. BENDAMUSTINE HYDROCHLORIDE. [Concomitant]
     Active Substance: BENDAMUSTINE HYDROCHLORIDE

REACTIONS (1)
  - Infarction [Recovered/Resolved with Sequelae]

NARRATIVE: CASE EVENT DATE: 20200706
